FAERS Safety Report 8109056-6 (Version None)
Quarter: 2012Q1

REPORT INFORMATION
  Report Type: 
  Country: None (occurrence: None)
  Receive Date: 20120202
  Receipt Date: 20120103
  Transmission Date: 20120608
  Serious: No
  Sender: FDA-Public Use
  Company Number: US-AMGEN-USASP2012000240

PATIENT
  Sex: Female

DRUGS (2)
  1. ENBREL [Suspect]
     Indication: ANKYLOSING SPONDYLITIS
     Dosage: 50 MG, QWK
     Dates: start: 20111229
  2. ENBREL [Suspect]
     Indication: SPONDYLOARTHROPATHY

REACTIONS (4)
  - ABNORMAL DREAMS [None]
  - PHOSPHENES [None]
  - DIZZINESS [None]
  - VERTIGO [None]
